FAERS Safety Report 15135132 (Version 2)
Quarter: 2018Q4

REPORT INFORMATION
  Report Type: Spontaneous
  Country: US (occurrence: US)
  Receive Date: 20180712
  Receipt Date: 20181011
  Transmission Date: 20190204
  Serious: No
  Sender: FDA-Public Use
  Company Number: US-ABBVIE-18K-163-2411474-00

PATIENT
  Sex: Female

DRUGS (3)
  1. VENCLEXTA [Suspect]
     Active Substance: VENETOCLAX
     Indication: T-CELL PROLYMPHOCYTIC LEUKAEMIA
     Dosage: 100MG 3 TABLETS
     Route: 048
  2. VENCLEXTA [Suspect]
     Active Substance: VENETOCLAX
     Indication: REMISSION NOT ACHIEVED
     Route: 048
     Dates: start: 201711
  3. VENCLEXTA [Suspect]
     Active Substance: VENETOCLAX
     Route: 048
     Dates: start: 20171213

REACTIONS (4)
  - Lymphocyte count decreased [Unknown]
  - Intentional device use issue [Unknown]
  - Off label use [Unknown]
  - Skin mass [Unknown]
